FAERS Safety Report 8263273-3 (Version None)
Quarter: 2012Q2

REPORT INFORMATION
  Report Type: 
  Country: None (occurrence: None)
  Receive Date: 20120405
  Receipt Date: 20120402
  Transmission Date: 20120825
  Serious: Yes (Other)
  Sender: FDA-Public Use
  Company Number: US-PFIZER INC-2012075837

PATIENT
  Sex: Female

DRUGS (20)
  1. LIRAGLUTIDE (NN2211) [Concomitant]
     Indication: TYPE 2 DIABETES MELLITUS
     Dosage: 0.6 MG/O.1 ML (18 MG/3 ML) PNIJ: INJECT 1.8 UG INTO SKIN DAILY
  2. WELCHOL [Concomitant]
     Indication: ALVEOLAR PROTEINOSIS
     Dosage: 625 MG TABLET, TAKE 2 TABLETS, TWICE DAILY WITH MEALS
     Route: 048
  3. CLARINEX [Concomitant]
     Indication: RHINITIS SEASONAL
     Dosage: 5 MG (1 TABLET), DAILY
     Route: 048
  4. LANTUS [Concomitant]
     Dosage: 100 UNIT/ML, 90 UNITS, NIGHTLY
     Route: 058
  5. DETROL LA [Suspect]
     Dosage: 4 MG (1 CAPSULE), 1X/DAY (DAILY)
     Route: 048
  6. VITAMIN D [Concomitant]
     Dosage: 4000 UNITS, DAILY
     Route: 048
  7. VITAMIN B-12 [Concomitant]
     Dosage: 2500 UG (1 TABLET) UNDER TONGUE DAILY
     Route: 060
  8. JANUVIA [Concomitant]
     Dosage: 100 MG, DAILY
     Route: 048
  9. BONIVA [Concomitant]
     Indication: OSTEOPOROSIS POSTMENOPAUSAL
     Dosage: 150 MG (1 TABLET), EVERY 30 DAYS
     Route: 048
  10. SYNTHROID [Concomitant]
     Indication: HYPOTHYROIDISM
     Dosage: 150 UG TABLET (TAKE 1.5 TABLETS 3 DAYS A WEEK AND 1 TABLET ON OTHER DAYS
  11. ZOLOFT [Suspect]
     Dosage: 100 MG (1 TABLET OF 100 MG), NIGHTLY
     Route: 048
  12. PRILOSEC [Concomitant]
     Dosage: 20 MG (1 CAPSULE), DAILY
     Route: 048
  13. GLUCOTROL XL [Suspect]
     Dosage: 5 MG (1 TABLET), 2X/DAY
     Route: 048
  14. CALCIUM CARBONATE [Concomitant]
     Indication: OSTEOPOROSIS
     Dosage: 600 MG (1500 MG) 1 TABLET, 2X/DAY (WITH MEALS) AS REPORTED
     Route: 048
  15. LIPITOR [Suspect]
     Dosage: 80 MG, 1X/DAY
     Route: 048
  16. ZOLOFT [Suspect]
     Dosage: 100 MG (2 TABLETS OF 50 MG), NIGHTLY (QHS)
     Route: 048
  17. INSULIN ASPART [Concomitant]
     Dosage: 100 UNIT/ML INPN; 12 UNITS, 3X/DAY (BEFORE MEALS)
     Route: 058
  18. INSULIN [Concomitant]
     Dosage: 1 ML, NIGHTLY
     Route: 058
  19. ACCUPRIL [Suspect]
     Dosage: 20 MG (1 TABLET), 1X/DAY (DAILY)
     Route: 048
  20. ALDACTONE [Suspect]
     Dosage: 25 MG (0.5 TABLET OF 50 MG), 2X/DAY
     Route: 048

REACTIONS (16)
  - OSTEOPENIA [None]
  - HYPERTONIC BLADDER [None]
  - HYPOTHYROIDISM [None]
  - VITAMIN B12 DEFICIENCY [None]
  - RHINITIS ALLERGIC [None]
  - RENAL FAILURE [None]
  - OEDEMA [None]
  - BLOOD CHOLESTEROL INCREASED [None]
  - MUSCULOSKELETAL PAIN [None]
  - VITAMIN D DEFICIENCY [None]
  - SNORING [None]
  - DEPRESSION [None]
  - DIABETES MELLITUS INADEQUATE CONTROL [None]
  - GASTROOESOPHAGEAL REFLUX DISEASE [None]
  - BACK PAIN [None]
  - ESSENTIAL HYPERTENSION [None]
